FAERS Safety Report 8285969-X (Version None)
Quarter: 2012Q2

REPORT INFORMATION
  Report Type: 
  Country: None (occurrence: None)
  Receive Date: 20120415
  Receipt Date: 20120404
  Transmission Date: 20120825
  Serious: Yes (Other)
  Sender: FDA-Public Use
  Company Number: FR-BRISTOL-MYERS SQUIBB COMPANY-16339939

PATIENT
  Age: 49 Year
  Sex: Male
  Weight: 72 kg

DRUGS (4)
  1. ABILIFY [Suspect]
     Indication: MERYCISM
     Dosage: DOSE REDUCED 5MG 2007:10MG/DAY 25MAR10:0.7MG
     Route: 048
     Dates: start: 20070101, end: 20111208
  2. ABILIFY [Suspect]
     Indication: ANXIETY
     Dosage: DOSE REDUCED 5MG 2007:10MG/DAY 25MAR10:0.7MG
     Route: 048
     Dates: start: 20070101, end: 20111208
  3. ZYPREXA [Suspect]
     Route: 048
     Dates: start: 20061114, end: 20070830
  4. ABILIFY [Suspect]
     Indication: OBSESSIVE-COMPULSIVE DISORDER
     Dosage: DOSE REDUCED 5MG 2007:10MG/DAY 25MAR10:0.7MG
     Route: 048
     Dates: start: 20070101, end: 20111208

REACTIONS (4)
  - MICROGRAPHIA [None]
  - RESTLESS LEGS SYNDROME [None]
  - TARDIVE DYSKINESIA [None]
  - TREMOR [None]
